FAERS Safety Report 4880274-3 (Version None)
Quarter: 2006Q1

REPORT INFORMATION
  Report Type: 
  Country: None (occurrence: None)
  Receive Date: 20060113
  Receipt Date: 20060103
  Transmission Date: 20060701
  Serious: Yes (Disabling)
  Sender: FDA-Public Use
  Company Number: 2006CG00081

PATIENT
  Age: 14507 Day
  Sex: Male

DRUGS (1)
  1. MARCAINE [Suspect]
     Indication: ANAESTHESIA
     Dates: start: 20020114, end: 20020114

REACTIONS (7)
  - HYPOAESTHESIA [None]
  - IMPAIRED HEALING [None]
  - MUSCULAR WEAKNESS [None]
  - NECROSIS [None]
  - PAIN IN EXTREMITY [None]
  - SENSORY DISTURBANCE [None]
  - THERMAL BURN [None]
